FAERS Safety Report 4683866-X (Version None)
Quarter: 2005Q2

REPORT INFORMATION
  Report Type: 
  Country: None (occurrence: None)
  Receive Date: 20050606
  Receipt Date: 20050606
  Transmission Date: 20051028
  Serious: Yes (Other)
  Sender: FDA-Public Use
  Company Number: None

PATIENT
  Age: 22 Year
  Sex: Female

DRUGS (2)
  1. PHENERGAN [Suspect]
     Indication: NAUSEA
     Dosage: 25 MG IV
     Route: 042
  2. DEMEROL [Concomitant]

REACTIONS (3)
  - ANXIETY [None]
  - PAIN IN EXTREMITY [None]
  - TREMOR [None]
